FAERS Safety Report 6935161-3 (Version None)
Quarter: 2010Q3

REPORT INFORMATION
  Report Type: 
  Country: None (occurrence: None)
  Receive Date: 20100822
  Receipt Date: 20100816
  Transmission Date: 20110219
  Serious: Yes (Death)
  Sender: FDA-Public Use
  Company Number: PHHY2010AU54131

PATIENT

DRUGS (1)
  1. AFINITOR [Suspect]

REACTIONS (1)
  - INTESTINAL PERFORATION [None]
